FAERS Safety Report 24112712 (Version 1)
Quarter: 2024Q3

REPORT INFORMATION
  Report Type: Spontaneous
  Country: PL (occurrence: PL)
  Receive Date: 20240719
  Receipt Date: 20240719
  Transmission Date: 20241016
  Serious: Yes (Death, Hospitalization, Other)
  Sender: BAYER
  Company Number: PL-BAYER-2024A104484

PATIENT
  Sex: Male

DRUGS (3)
  1. ADEMPAS [Suspect]
     Active Substance: RIOCIGUAT
     Indication: Pulmonary hypertension
     Dosage: UNK
     Dates: start: 202108
  2. ADEMPAS [Suspect]
     Active Substance: RIOCIGUAT
     Indication: Pulmonary arterial hypertension
  3. TREPROSTINIL [Concomitant]
     Active Substance: TREPROSTINIL

REACTIONS (8)
  - Gastrointestinal perforation [Fatal]
  - Sepsis [Fatal]
  - Cardiac failure [None]
  - Peritonitis [None]
  - Infection [None]
  - Pulmonary angioplasty [None]
  - Pulmonary angioplasty [None]
  - Oedema [None]

NARRATIVE: CASE EVENT DATE: 20220601
